FAERS Safety Report 6516627-7 (Version None)
Quarter: 2009Q4

REPORT INFORMATION
  Report Type: 
  Country: None (occurrence: None)
  Receive Date: 20091216
  Receipt Date: 20090303
  Transmission Date: 20100525
  Serious: Yes (Other)
  Sender: FDA-Public Use
  Company Number: 2009NI0054

PATIENT
  Age: 60 Year
  Sex: Male
  Weight: 78.4723 kg

DRUGS (1)
  1. NITROLINGUAL PUMPSPRAY [Suspect]
     Indication: VASOSPASM
     Dosage: AS NEEDED

REACTIONS (1)
  - DRUG INEFFECTIVE [None]
